FAERS Safety Report 7336161-4 (Version None)
Quarter: 2011Q1

REPORT INFORMATION
  Report Type: 
  Country: None (occurrence: None)
  Receive Date: 20110302
  Receipt Date: 20110302
  Transmission Date: 20110831
  Serious: No
  Sender: FDA-Public Use
  Company Number: None

PATIENT
  Age: 35 Year
  Sex: Male
  Weight: 77.3 kg

DRUGS (2)
  1. PENICILLIN [Suspect]
     Indication: CELLULITIS
     Dates: start: 20101223
  2. PENICILLIN [Suspect]
     Indication: PHARYNGEAL DISORDER
     Dates: start: 20101223

REACTIONS (3)
  - CELLULITIS [None]
  - PHARYNGEAL DISORDER [None]
  - CONDITION AGGRAVATED [None]
